FAERS Safety Report 5665446-2 (Version None)
Quarter: 2008Q1

REPORT INFORMATION
  Report Type: 
  Country: None (occurrence: None)
  Receive Date: 20080314
  Receipt Date: 20071203
  Transmission Date: 20080703
  Serious: No
  Sender: FDA-Public Use
  Company Number: US-ABBOTT-07P-163-0427670-00

PATIENT
  Age: 23 Year
  Sex: Female

DRUGS (3)
  1. HUMIRA [Suspect]
     Indication: CROHN'S DISEASE
     Route: 058
     Dates: start: 20071107, end: 20071121
  2. HUMIRA [Suspect]
     Route: 058
     Dates: start: 20071121, end: 20071205
  3. HUMIRA [Suspect]
     Route: 058
     Dates: start: 20071205

REACTIONS (3)
  - NAUSEA [None]
  - SINUSITIS [None]
  - VOMITING [None]
